FAERS Safety Report 11895625 (Version 1)
Quarter: 2016Q1

REPORT INFORMATION
  Report Type: Report from Study
  Country: US (occurrence: US)
  Receive Date: 20160107
  Receipt Date: 20160107
  Transmission Date: 20160526
  Serious: Yes (Hospitalization)
  Sender: FDA-Public Use
  Company Number: US-GILEAD-2016-0191452

PATIENT
  Age: 79 Year
  Sex: Female

DRUGS (1)
  1. RANOLAZINE [Suspect]
     Active Substance: RANOLAZINE
     Indication: PRODUCT USED FOR UNKNOWN INDICATION
     Dosage: 1000 MG, UNK
     Route: 048

REACTIONS (5)
  - Contusion [Unknown]
  - Rib fracture [Unknown]
  - Hand fracture [Unknown]
  - Accident [Unknown]
  - Head injury [Unknown]
